FAERS Safety Report 10369541 (Version 2)
Quarter: 2015Q4

REPORT INFORMATION
  Report Type: Spontaneous
  Country: US (occurrence: US)
  Receive Date: 20140807
  Receipt Date: 20151013
  Transmission Date: 20160304
  Serious: No
  Sender: FDA-Public Use
  Company Number: US-AMGEN-USASP2013065617

PATIENT
  Sex: Female

DRUGS (4)
  1. LISINOPRIL. [Concomitant]
     Active Substance: LISINOPRIL
     Dosage: UNK
  2. NEUPOGEN [Suspect]
     Active Substance: FILGRASTIM
     Indication: WHITE BLOOD CELL COUNT DECREASED
     Dosage: UNK
     Route: 065
     Dates: start: 201304
  3. CYMBALTA [Concomitant]
     Active Substance: DULOXETINE HYDROCHLORIDE
     Dosage: UNK
  4. ARMOUR THYROID [Concomitant]
     Active Substance: THYROID, PORCINE\THYROID, UNSPECIFIED
     Dosage: UNK

REACTIONS (1)
  - Drug effect incomplete [Unknown]
